FAERS Safety Report 16404773 (Version 1)
Quarter: 2019Q2

REPORT INFORMATION
  Report Type: Spontaneous
  Country: US (occurrence: US)
  Receive Date: 20190501
  Receipt Date: 20190501
  Transmission Date: 20190711
  Serious: Yes (Hospitalization)
  Sender: FDA-Public Use
  Company Number: None

PATIENT
  Age: 66 Year
  Sex: Male
  Weight: 122.02 kg

DRUGS (1)
  1. METFORMIN [Suspect]
     Active Substance: METFORMIN HYDROCHLORIDE
     Indication: DIABETES MELLITUS
     Route: 048
     Dates: start: 20160912, end: 20190404

REACTIONS (6)
  - Fall [None]
  - Skin laceration [None]
  - Blood urea increased [None]
  - Facial bones fracture [None]
  - Blood creatinine increased [None]
  - Lactic acidosis [None]

NARRATIVE: CASE EVENT DATE: 20190404
